FAERS Safety Report 20663945 (Version 1)
Quarter: 2022Q2

REPORT INFORMATION
  Report Type: Spontaneous
  Country: US (occurrence: None)
  Receive Date: 20220401
  Receipt Date: 20220401
  Transmission Date: 20220721
  Serious: No
  Sender: FDA-Public Use
  Company Number: None

PATIENT
  Age: 58 Year
  Sex: Female
  Weight: 76.5 kg

DRUGS (1)
  1. FIRDAPSE [Suspect]
     Active Substance: AMIFAMPRIDINE PHOSPHATE
     Indication: Myasthenic syndrome
     Dosage: OTHER QUANTITY : 2 TABLET(S);?FREQUENCY : EVERY 4 HOURS;?
     Route: 048
     Dates: start: 20220310

REACTIONS (12)
  - Off label use [None]
  - Dysarthria [None]
  - Feeling abnormal [None]
  - Aphasia [None]
  - Asthenia [None]
  - Depressed mood [None]
  - Mood altered [None]
  - Myalgia [None]
  - Gait inability [None]
  - Headache [None]
  - Paraesthesia [None]
  - Drug ineffective [None]

NARRATIVE: CASE EVENT DATE: 20220310
